FAERS Safety Report 8429869-0 (Version None)
Quarter: 2012Q2

REPORT INFORMATION
  Report Type: 
  Country: None (occurrence: None)
  Receive Date: 20120612
  Receipt Date: 20120601
  Transmission Date: 20120825
  Serious: Yes (Other)
  Sender: FDA-Public Use
  Company Number: US-BRISTOL-MYERS SQUIBB COMPANY-16655946

PATIENT
  Age: 70 Year
  Sex: Female
  Weight: 61 kg

DRUGS (4)
  1. COUMADIN [Suspect]
     Dosage: ALSO TAKEN 2.5MG,7.5MG,10MG
     Route: 048
     Dates: start: 20001101
  2. NIASPAN [Concomitant]
     Indication: BLOOD CHOLESTEROL INCREASED
  3. PRISTIQ [Interacting]
     Indication: DEPRESSION
     Dosage: 3-4 MONTHS
     Dates: start: 20120105
  4. PRAVASTATIN [Concomitant]
     Indication: BLOOD CHOLESTEROL INCREASED

REACTIONS (3)
  - INTERNATIONAL NORMALISED RATIO DECREASED [None]
  - DRUG INTERACTION [None]
  - THYROID DISORDER [None]
